FAERS Safety Report 9553299 (Version 1)
Quarter: 2013Q3

REPORT INFORMATION
  Report Type: Spontaneous
  Country: US (occurrence: None)
  Receive Date: 20130916
  Receipt Date: 20130916
  Transmission Date: 20140515
  Serious: Yes (Disabling, Other)
  Sender: FDA-Public Use
  Company Number: JPI-P-021936

PATIENT
  Age: 47 Year
  Sex: Female
  Weight: 125.65 kg

DRUGS (9)
  1. XYREM [Suspect]
     Indication: NARCOLEPSY
     Dosage: 4.5 GM (2.25 GM, 2 IN 1 D), ORAL
     Route: 048
     Dates: start: 20120605, end: 2012
  2. XYREM [Suspect]
     Indication: SOMNOLENCE
     Dosage: 4.5 GM (2.25 GM, 2 IN 1 D), ORAL
     Route: 048
     Dates: start: 20120605, end: 2012
  3. XYREM [Suspect]
     Indication: FIBROMYALGIA
     Dosage: 4.5 GM (2.25 GM, 2 IN 1 D), ORAL
     Route: 048
     Dates: start: 20120605, end: 2012
  4. LOSARTAN [Suspect]
     Indication: HYPERTENSION
     Dosage: UNKNOWN
  5. CYMBALTA (DULOXETINE HYDROCHLORIDE) [Concomitant]
  6. ROPINIROLE [Concomitant]
  7. OXYCODONE [Concomitant]
  8. TIZANIDINE [Concomitant]
  9. FLURAZEPAM [Concomitant]

REACTIONS (1)
  - Local swelling [None]
